FAERS Safety Report 24046081 (Version 1)
Quarter: 2024Q3

REPORT INFORMATION
  Report Type: Spontaneous
  Country: US (occurrence: None)
  Receive Date: 20240702
  Receipt Date: 20240702
  Transmission Date: 20241017
  Serious: No
  Sender: Public
  Company Number: None

PATIENT
  Sex: Female

DRUGS (5)
  1. AMBRISENTAN [Suspect]
     Active Substance: AMBRISENTAN
     Indication: Pulmonary hypertension
     Dosage: FREQUENCY : DAILY;?
     Route: 048
  2. FUROSEMIDE	  POTASSIUM [Concomitant]
  3. POTASSIUM [Concomitant]
     Active Substance: POTASSIUM
  4. TADALAFIL [Concomitant]
     Active Substance: TADALAFIL
  5. TADALAFIL [Suspect]
     Active Substance: TADALAFIL

REACTIONS (2)
  - Spondyloarthropathy [None]
  - Seronegative arthritis [None]
